FAERS Safety Report 10546616 (Version 1)
Quarter: 2014Q4

REPORT INFORMATION
  Report Type: Spontaneous
  Country: US (occurrence: US)
  Receive Date: 20141027
  Receipt Date: 20141027
  Transmission Date: 20150529
  Serious: No
  Sender: FDA-Public Use
  Company Number: US-ABBVIE-13P-163-1176180-00

PATIENT
  Sex: Female

DRUGS (1)
  1. LUPRON [Suspect]
     Active Substance: LEUPROLIDE ACETATE
     Indication: PRODUCT USED FOR UNKNOWN INDICATION
     Dates: start: 201104

REACTIONS (6)
  - Hyperhidrosis [Unknown]
  - Unevaluable event [Unknown]
  - Back pain [Unknown]
  - Arthralgia [Unknown]
  - Menstrual disorder [Unknown]
  - Menstruation delayed [Unknown]
